FAERS Safety Report 7205676-1 (Version None)
Quarter: 2010Q4

REPORT INFORMATION
  Report Type: 
  Country: None (occurrence: None)
  Receive Date: 20101231
  Receipt Date: 20101227
  Transmission Date: 20110411
  Serious: Yes (Hospitalization, Other)
  Sender: FDA-Public Use
  Company Number: US-PFIZER INC-2010176162

PATIENT
  Sex: Female
  Weight: 52.154 kg

DRUGS (10)
  1. CELEBREX [Suspect]
     Indication: ARTHRITIS
     Dosage: 200 MG, 2X/DAY
     Route: 048
  2. CELEBREX [Suspect]
     Dosage: 200 MG, 1X/DAY
  3. PREMARIN [Concomitant]
     Indication: HYSTERECTOMY
     Dosage: 0.3 MG, 1X/DAY
     Route: 048
  4. SYNTHROID [Concomitant]
     Indication: THYROID FUNCTION TEST ABNORMAL
     Dosage: 7.5 MG, 1X/DAY
     Route: 048
  5. LASIX [Concomitant]
     Indication: JOINT SWELLING
     Dosage: 40 MG, 1X/DAY
     Route: 048
  6. POTASSIUM CHLORIDE [Concomitant]
     Dosage: 10 MG, 2X/DAY
     Route: 048
  7. LIPITOR [Concomitant]
     Indication: BLOOD CHOLESTEROL INCREASED
     Dosage: 10 MG, 1X/DAY
     Route: 048
  8. MULTIVITAMIN [Concomitant]
     Dosage: UNK
  9. FISH OIL [Concomitant]
     Dosage: UNK
  10. CALCIUM [Concomitant]
     Dosage: UNK

REACTIONS (5)
  - ATRIAL FIBRILLATION [None]
  - BODY HEIGHT DECREASED [None]
  - KNEE OPERATION [None]
  - PNEUMONIA [None]
  - SCOLIOSIS [None]
